FAERS Safety Report 5833238-7 (Version None)
Quarter: 2008Q3

REPORT INFORMATION
  Report Type: 
  Country: None (occurrence: None)
  Receive Date: 20080805
  Receipt Date: 20080728
  Transmission Date: 20090109
  Serious: Yes (Hospitalization, Other)
  Sender: FDA-Public Use
  Company Number: US-BRISTOL-MYERS SQUIBB COMPANY-14220891

PATIENT
  Age: 80 Year
  Sex: Female
  Weight: 52 kg

DRUGS (4)
  1. SPRYCEL [Suspect]
     Indication: CHRONIC MYELOID LEUKAEMIA
     Dosage: THERAPY:INTERRUPTED(07JUN08-08JUN08);RESTARTED ON 13JUN08,70MG,QD.
     Route: 048
     Dates: start: 20080523
  2. HYDREA [Concomitant]
  3. TEMAZEPAM [Concomitant]
  4. FOSAMAX [Concomitant]
     Dosage: ALENDRONATE SODIUM 15 MG NIGHTLY P.R.N

REACTIONS (8)
  - CONTUSION [None]
  - DIZZINESS [None]
  - FATIGUE [None]
  - HAEMATOCRIT DECREASED [None]
  - MENTAL STATUS CHANGES [None]
  - RASH [None]
  - THROMBOCYTOPENIA [None]
  - TRANSFUSION REACTION [None]
